FAERS Safety Report 14289480 (Version 1)
Quarter: 2017Q4

REPORT INFORMATION
  Report Type: Spontaneous
  Country: US (occurrence: US)
  Receive Date: 20171214
  Receipt Date: 20171214
  Transmission Date: 20180321
  Serious: No
  Sender: FDA-Public Use
  Company Number: None

PATIENT

DRUGS (1)
  1. IBUPROFEN 600 MG [Suspect]
     Active Substance: IBUPROFEN
     Dosage: ?          QUANTITY:30 TABLET(S);?

REACTIONS (1)
  - Constipation [None]
